FAERS Safety Report 18974292 (Version 4)
Quarter: 2021Q2

REPORT INFORMATION
  Report Type: Report from Study
  Country: US (occurrence: US)
  Receive Date: 20210305
  Receipt Date: 20210615
  Transmission Date: 20210717
  Serious: Yes (Hospitalization)
  Sender: FDA-Public Use
  Company Number: US-SA-2021SA075472

PATIENT
  Age: 20 Year
  Sex: Female
  Weight: 59.3 kg

DRUGS (29)
  1. BUSULFAN. [Suspect]
     Active Substance: BUSULFAN
     Indication: SICKLE CELL DISEASE
     Dosage: 210.65 MG, QD FOR 4 DAYS
     Route: 042
     Dates: start: 20200902, end: 20200905
  2. METHADONE [Concomitant]
     Active Substance: METHADONE HYDROCHLORIDE
     Indication: BACK PAIN
     Dosage: 5 MG, QD
     Route: 048
     Dates: start: 20201023, end: 20201028
  3. OXYCODONE AND ACETAMINOPHEN [Concomitant]
     Active Substance: ACETAMINOPHEN\OXYCODONE HYDROCHLORIDE
     Indication: SICKLE CELL ANAEMIA WITH CRISIS
     Dosage: UNK
     Dates: start: 20200616
  4. FLEXERIL [CEFIXIME] [Concomitant]
     Active Substance: CEFIXIME
     Indication: SICKLE CELL ANAEMIA WITH CRISIS
     Dosage: UNK UNK, PRN
     Dates: start: 202005
  5. FOLIC ACID. [Concomitant]
     Active Substance: FOLIC ACID
     Indication: PROPHYLAXIS
     Dosage: 1 MG, QD
     Route: 048
     Dates: start: 20171019
  6. HYDROCODONE/ACETAMINOPHEN [Concomitant]
     Active Substance: ACETAMINOPHEN\HYDROCODONE
     Dosage: 1 DF, Q6H; AS NEEDED
     Route: 048
     Dates: start: 202005
  7. BACTRIM [Concomitant]
     Active Substance: SULFAMETHOXAZOLE\TRIMETHOPRIM
     Indication: ANTIBIOTIC PROPHYLAXIS
     Dosage: 2 DF DAILY ON SAT AND SUN
     Route: 048
     Dates: start: 20201031
  8. HYDROCODONE/ACETAMINOPHEN [Concomitant]
     Active Substance: ACETAMINOPHEN\HYDROCODONE
     Indication: PAIN
  9. MELATONIN [Concomitant]
     Active Substance: MELATONIN
     Indication: INSOMNIA
     Dosage: 6 MG, QD
     Route: 048
     Dates: start: 20201012
  10. HYDROMORPHONE [Concomitant]
     Active Substance: HYDROMORPHONE
     Indication: SICKLE CELL ANAEMIA WITH CRISIS
     Dosage: 4 MG, PRN
     Route: 048
     Dates: start: 20180907
  11. HYDROCODONE/ACETAMINOPHEN [Concomitant]
     Active Substance: ACETAMINOPHEN\HYDROCODONE
     Indication: SICKLE CELL ANAEMIA WITH CRISIS
     Dosage: 2 DF, Q4H
     Route: 048
     Dates: start: 20200523
  12. PLERIXAFOR [Suspect]
     Active Substance: PLERIXAFOR
     Indication: SICKLE CELL DISEASE
     Dosage: 0.24 MG/KG, QD
     Route: 058
     Dates: start: 20200519, end: 20200521
  13. SERTRALINE [Concomitant]
     Active Substance: SERTRALINE HYDROCHLORIDE
     Indication: DEPRESSION
     Dosage: 25 MG, QD
     Route: 048
     Dates: start: 20190503
  14. DILAUDID [Concomitant]
     Active Substance: HYDROMORPHONE HYDROCHLORIDE
     Indication: SICKLE CELL ANAEMIA WITH CRISIS
     Dosage: 1 MG/ML, CONT (HIGH DOSE?OPIATE TOLERANT) PCA IN 50ML NS
     Route: 042
     Dates: start: 202005
  15. PENICILLIN V POTASSIUM. [Concomitant]
     Active Substance: PENICILLIN V POTASSIUM
     Indication: ANTIBIOTIC PROPHYLAXIS
     Dosage: 250 MG, BID
     Route: 048
     Dates: start: 20201020
  16. PROCHLORPERAZINE. [Concomitant]
     Active Substance: PROCHLORPERAZINE
     Indication: NAUSEA
     Dosage: 5 MG, PRN
     Route: 048
     Dates: start: 20190729
  17. BIVV?003. [Suspect]
     Active Substance: BIVV-003
     Indication: SICKLE CELL DISEASE
     Dosage: 206X10E6 CELLS/KG 1X
     Route: 041
     Dates: start: 20200908, end: 20200908
  18. DEFEROXAMINE [Concomitant]
     Active Substance: DEFEROXAMINE MESYLATE
     Indication: IRON OVERLOAD
     Dosage: 2000 MG; FREQUENCY: 5 DAYS A WEEK
     Route: 042
     Dates: start: 20190104
  19. HYDROCODONE/ACETAMINOPHEN [Concomitant]
     Active Substance: ACETAMINOPHEN\HYDROCODONE
     Indication: SICKLE CELL ANAEMIA WITH CRISIS
     Dosage: 5?325 MG, PRN
     Route: 048
     Dates: start: 20191016
  20. CYCLOBENZAPRINE. [Concomitant]
     Active Substance: CYCLOBENZAPRINE
     Indication: SICKLE CELL ANAEMIA WITH CRISIS
     Dosage: UNK
     Dates: start: 20200522
  21. OXYCODONE [Concomitant]
     Active Substance: OXYCODONE
     Indication: BACK PAIN
     Dosage: 10 MG, PRN
     Route: 048
     Dates: start: 20201020, end: 20201026
  22. MULTIVITAMINS [VITAMINS NOS] [Concomitant]
     Active Substance: VITAMINS
     Indication: SUPPLEMENTATION THERAPY
     Dosage: 1 DF, QD
     Route: 048
     Dates: start: 20201014
  23. ACYCLOVIR [ACICLOVIR] [Concomitant]
     Active Substance: ACYCLOVIR
     Indication: ANTIVIRAL PROPHYLAXIS
     Dosage: 800 MG, BID
     Route: 048
     Dates: start: 20201012
  24. HYDROMORPHONE [Concomitant]
     Active Substance: HYDROMORPHONE
     Indication: PAIN
     Dosage: UNK
     Route: 042
     Dates: start: 20200616
  25. HYDROXYUREA. [Concomitant]
     Active Substance: HYDROXYUREA
     Indication: SICKLE CELL ANAEMIA
     Dosage: 1500 MG, QD
     Route: 048
     Dates: start: 20190730
  26. CHOLECALCIFEROL [Concomitant]
     Active Substance: CHOLECALCIFEROL
     Indication: SUPPLEMENTATION THERAPY
     Dosage: 2000 U, QD
     Route: 048
     Dates: start: 20201014
  27. SENNA GLYCOSIDES [Concomitant]
     Active Substance: HERBALS\SENNOSIDES
     Indication: CONSTIPATION
     Dosage: 8.6 MG, BID
     Route: 048
     Dates: start: 20201008
  28. FLUCONAZOLE. [Concomitant]
     Active Substance: FLUCONAZOLE
     Indication: ANTIFUNGAL PROPHYLAXIS
     Dosage: 300 MG, QD
     Route: 048
     Dates: start: 20201011
  29. DILAUDID [Concomitant]
     Active Substance: HYDROMORPHONE HYDROCHLORIDE
     Dosage: 4 MG (1 TABLET), Q4H
     Route: 048
     Dates: start: 202005

REACTIONS (4)
  - Vomiting [Recovered/Resolved]
  - Nausea [Recovered/Resolved]
  - Pharyngitis [Recovered/Resolved]
  - Nausea [Recovered/Resolved]

NARRATIVE: CASE EVENT DATE: 20201026
